FAERS Safety Report 5733444-6 (Version None)
Quarter: 2008Q2

REPORT INFORMATION
  Report Type: 
  Country: None (occurrence: None)
  Receive Date: 20080509
  Receipt Date: 20080428
  Transmission Date: 20081010
  Serious: Yes (Other)
  Sender: FDA-Public Use
  Company Number: US-ROCHE-562792

PATIENT

DRUGS (5)
  1. INTERFERON ALFA-2A [Suspect]
     Indication: METASTATIC RENAL CELL CARCINOMA
     Dosage: DAILY WITHOUT INTERRUPTION
     Route: 058
  2. XELODA [Suspect]
     Indication: METASTATIC RENAL CELL CARCINOMA
     Dosage: 1000 MG/M2 DAILY IN 2 DIVIDED DOSES, 2 WEEKS ON, 1 WEEK OFF.
     Route: 048
  3. GEMCITABINE [Suspect]
     Indication: METASTATIC RENAL CELL CARCINOMA
     Dosage: ON DAY 1, WEEK 1 AND DAY 8, WEEK 2.
     Route: 042
  4. THALIDOMIDE [Suspect]
     Indication: METASTATIC RENAL CELL CARCINOMA
     Dosage: AT BEDTIME.  FOR 7 DAYS.
     Route: 048
  5. THALIDOMIDE [Suspect]
     Dosage: INCREASED ON DAY 8.
     Route: 048

REACTIONS (1)
  - DEEP VEIN THROMBOSIS [None]
